FAERS Safety Report 7319792-7 (Version None)
Quarter: 2011Q1

REPORT INFORMATION
  Report Type: 
  Country: None (occurrence: None)
  Receive Date: 20110228
  Receipt Date: 20100929
  Transmission Date: 20110831
  Serious: Yes (Other)
  Sender: FDA-Public Use
  Company Number: A0884018A

PATIENT
  Age: 14 Year
  Sex: Female

DRUGS (4)
  1. LAMICTAL [Suspect]
     Route: 048
     Dates: start: 20060901
  2. LAMOTRIGINE [Suspect]
     Route: 048
     Dates: start: 20090601, end: 20090601
  3. KEPPRA [Concomitant]
  4. PAXIL [Suspect]
     Indication: ANXIETY DISORDER
     Route: 048
     Dates: start: 20030101, end: 20040101

REACTIONS (2)
  - CONVULSION [None]
  - PARTIAL SEIZURES [None]
